FAERS Safety Report 5668966-X (Version None)
Quarter: 2008Q1

REPORT INFORMATION
  Report Type: 
  Country: None (occurrence: None)
  Receive Date: 20080317
  Receipt Date: 20080310
  Transmission Date: 20080703
  Serious: Yes (Other)
  Sender: FDA-Public Use
  Company Number: US-ROCHE-518444

PATIENT
  Age: 55 Year
  Sex: Female

DRUGS (4)
  1. PEG-INTERFERON A-2A (RO 25-8310) [Suspect]
     Route: 065
     Dates: start: 20070521
  2. PEG-INTERFERON A-2A (RO 25-8310) [Suspect]
     Dosage: DOSE REDUCED AT AN UNSPECIFIED DATE. FORMULATION: PREFILLED SYRINGE
     Route: 065
  3. RIBAVIRIN [Suspect]
     Route: 065
     Dates: start: 20070521
  4. RIBAVIRIN [Suspect]
     Dosage: REPORTS BEING ON AND OFF THE PILLS.
     Route: 065
     Dates: end: 20080225

REACTIONS (2)
  - DEHYDRATION [None]
  - LOOSE TOOTH [None]
